FAERS Safety Report 14668690 (Version 2)
Quarter: 2018Q2

REPORT INFORMATION
  Report Type: Other
  Country: CA (occurrence: CA)
  Receive Date: 20180322
  Receipt Date: 20180422
  Transmission Date: 20180711
  Serious: Yes (Other)
  Sender: FDA-Public Use
  Company Number: CA-APOTEX-2018AP008107

PATIENT
  Age: 52 Year
  Sex: Female

DRUGS (2)
  1. PREDNISONE. [Concomitant]
     Active Substance: PREDNISONE
     Indication: ASTHMA
     Dosage: UNK
     Route: 065
  2. SALBUTAMOL [Suspect]
     Active Substance: ALBUTEROL
     Indication: ASTHMA
     Dosage: UNK
     Route: 065

REACTIONS (11)
  - Anosmia [Unknown]
  - Back pain [Unknown]
  - Wheezing [Unknown]
  - Pulmonary mycosis [Unknown]
  - Rash generalised [Unknown]
  - Meniscus operation [Unknown]
  - Depression [Unknown]
  - Scoliosis [Unknown]
  - Fibromyalgia [Unknown]
  - Dyspnoea [Unknown]
  - Back disorder [Unknown]
